FAERS Safety Report 23376317 (Version 1)
Quarter: 2024Q1

REPORT INFORMATION
  Report Type: Spontaneous
  Country: US (occurrence: US)
  Receive Date: 20240108
  Receipt Date: 20240108
  Transmission Date: 20240410
  Serious: No
  Sender: FDA-Public Use
  Company Number: US-ELI_LILLY_AND_COMPANY-US202401001792

PATIENT
  Age: 69 Year
  Sex: Male

DRUGS (1)
  1. TRULICITY [Suspect]
     Active Substance: DULAGLUTIDE
     Indication: Blood glucose abnormal
     Dosage: 1.5 MG, UNKNOWN
     Route: 058
     Dates: start: 20220101

REACTIONS (1)
  - Injection site urticaria [Unknown]

NARRATIVE: CASE EVENT DATE: 20240103
